FAERS Safety Report 9028362 (Version 2)
Quarter: 2013Q1

REPORT INFORMATION
  Report Type: Spontaneous
  Country: US (occurrence: US)
  Receive Date: 20130124
  Receipt Date: 20130129
  Transmission Date: 20140127
  Serious: No
  Sender: FDA-Public Use
  Company Number: US-009507513-1301USA010674

PATIENT
  Sex: 0

DRUGS (2)
  1. IMPLANON [Suspect]
     Dosage: 1 DF, UNK
     Route: 059
     Dates: start: 20130118, end: 20130118
  2. IMPLANON [Suspect]
     Dosage: 1 DF, UNK
     Route: 059
     Dates: start: 20130118

REACTIONS (2)
  - Device difficult to use [Recovered/Resolved]
  - No adverse event [Unknown]
